FAERS Safety Report 14830318 (Version 1)
Quarter: 2018Q2

REPORT INFORMATION
  Report Type: Spontaneous
  Country: US (occurrence: US)
  Receive Date: 20180430
  Receipt Date: 20180430
  Transmission Date: 20180711
  Serious: No
  Sender: FDA-Public Use
  Company Number: US-SA-2018SA025719

PATIENT
  Age: 58 Year
  Sex: Male

DRUGS (14)
  1. TRESIBA [Concomitant]
     Active Substance: INSULIN DEGLUDEC
  2. TRULICITY [Concomitant]
     Active Substance: DULAGLUTIDE
  3. FOLATE [Concomitant]
     Active Substance: FOLATE SODIUM
  4. GABAPENTIN. [Concomitant]
     Active Substance: GABAPENTIN
  5. SYNJARDY [Concomitant]
     Active Substance: EMPAGLIFLOZIN\METFORMIN HYDROCHLORIDE
  6. PANTOPRAZOLE [Concomitant]
     Active Substance: PANTOPRAZOLE
  7. VITAMIN D3 [Concomitant]
     Active Substance: CHOLECALCIFEROL
  8. ALIROCUMAB PREFILLED PEN [Suspect]
     Active Substance: ALIROCUMAB
     Indication: PRODUCT USED FOR UNKNOWN INDICATION
     Dates: start: 20170505, end: 201801
  9. GLIMEPIRIDE. [Concomitant]
     Active Substance: GLIMEPIRIDE
  10. PRALUENT [Suspect]
     Active Substance: ALIROCUMAB
     Indication: PRODUCT USED FOR UNKNOWN INDICATION
     Route: 058
     Dates: start: 20170505, end: 201801
  11. METOPROLOL. [Concomitant]
     Active Substance: METOPROLOL
  12. ATORVASTATIN [Concomitant]
     Active Substance: ATORVASTATIN
  13. VALSARTAN. [Concomitant]
     Active Substance: VALSARTAN
  14. ASPIRIN. [Concomitant]
     Active Substance: ASPIRIN

REACTIONS (1)
  - Malaise [Unknown]

NARRATIVE: CASE EVENT DATE: 20180117
